FAERS Safety Report 10070835 (Version 1)
Quarter: 2014Q2

REPORT INFORMATION
  Report Type: Spontaneous
  Country: US (occurrence: None)
  Receive Date: 20140408
  Receipt Date: 20140408
  Transmission Date: 20141212
  Serious: Yes (Hospitalization)
  Sender: FDA-Public Use
  Company Number: 2014-US-003414

PATIENT
  Age: 26 Year
  Sex: Male

DRUGS (3)
  1. CLOZAPINE [Suspect]
     Indication: SCHIZOPHRENIA, PARANOID TYPE
     Route: 048
  2. VALPROIC ACID (VALPROIC ACID) [Concomitant]
  3. GLYCOPYRROLATE (GLYCOPYRRONIUM BROMIDE) [Concomitant]

REACTIONS (35)
  - Colonic pseudo-obstruction [None]
  - Lymphocytosis [None]
  - Thrombocytopenia [None]
  - Haematocrit increased [None]
  - Haemoglobin increased [None]
  - White blood cell count increased [None]
  - Monocyte count increased [None]
  - Prothrombin time prolonged [None]
  - Fibrin D dimer increased [None]
  - Blood potassium increased [None]
  - Ammonia increased [None]
  - Calcium ionised decreased [None]
  - Blood lactic acid increased [None]
  - Blood magnesium increased [None]
  - Pulse absent [None]
  - Cardio-respiratory arrest [None]
  - Blood pressure systolic decreased [None]
  - Blood pressure diastolic decreased [None]
  - Heart rate increased [None]
  - Tachycardia [None]
  - Gastrointestinal disorder [None]
  - Inflammation [None]
  - Septic shock [None]
  - Multi-organ failure [None]
  - Hypothermia [None]
  - Acidosis [None]
  - Procedural haemorrhage [None]
  - Coagulopathy [None]
  - Irritability [None]
  - Drug ineffective [None]
  - Necrosis ischaemic [None]
  - Gastrointestinal hypomotility [None]
  - Aspartate aminotransferase increased [None]
  - Blood alkaline phosphatase increased [None]
  - Blood creatine phosphokinase increased [None]
